FAERS Safety Report 6308990-7 (Version None)
Quarter: 2009Q3

REPORT INFORMATION
  Report Type: 
  Country: None (occurrence: None)
  Receive Date: 20090813
  Receipt Date: 20090805
  Transmission Date: 20100115
  Serious: Yes (Hospitalization, Other)
  Sender: FDA-Public Use
  Company Number: FR-AMGEN-US260536

PATIENT
  Sex: Female
  Weight: 70 kg

DRUGS (16)
  1. ENBREL [Suspect]
     Indication: RHEUMATOID ARTHRITIS
     Route: 058
     Dates: start: 20070506, end: 20080110
  2. TOPALGIC [Concomitant]
     Indication: RHEUMATOID ARTHRITIS
     Route: 048
  3. VASTAREL [Concomitant]
     Dosage: 70 MG TOTAL DAILY
     Route: 048
  4. LEVOTHYROX [Concomitant]
     Indication: HYPOTHYROIDISM
     Route: 048
  5. NEXIUM [Concomitant]
     Route: 048
  6. TEMESTA [Concomitant]
     Dosage: 7.5 MG TOTAL DAILY
     Route: 048
  7. CALCIUM CARBONATE [Concomitant]
     Dosage: 2 TABLETS TOTAL DAILY
     Route: 048
  8. COLECALCIFEROL [Concomitant]
     Dosage: 2 TABLETS TOTAL DAILY
     Route: 048
  9. METEOSPASMYL [Concomitant]
     Dosage: 3 TABLETS TOTAL DAILY
     Route: 048
  10. CORTANCYL [Concomitant]
     Indication: RHEUMATOID ARTHRITIS
     Dosage: 2 MG TOTAL DAILY
     Route: 048
     Dates: end: 20080101
  11. CORTANCYL [Concomitant]
     Dosage: 3 MG TOTAL DAILY
     Route: 048
     Dates: start: 20080101, end: 20080306
  12. CORTANCYL [Concomitant]
     Dosage: 10 MG TOTAL DAILY
     Route: 048
     Dates: start: 20080307
  13. CORTANCYL [Concomitant]
     Dosage: 5 MG TOTAL DAILY
     Route: 048
     Dates: start: 20080301, end: 20080401
  14. CORTANCYL [Concomitant]
     Dosage: 15 MG TOTAL DAILY
     Route: 048
     Dates: start: 20080401, end: 20080401
  15. CORTANCYL [Concomitant]
     Dosage: 5 MG TOTAL DAILY
     Route: 048
     Dates: start: 20080401
  16. ZOLOFT [Concomitant]
     Route: 048

REACTIONS (3)
  - CONDITION AGGRAVATED [None]
  - ERYTHEMA NODOSUM [None]
  - RHEUMATOID ARTHRITIS [None]
